FAERS Safety Report 23994214 (Version 1)
Quarter: 2024Q2

REPORT INFORMATION
  Report Type: Spontaneous
  Country: US (occurrence: US)
  Receive Date: 20240620
  Receipt Date: 20240620
  Transmission Date: 20240716
  Serious: Yes (Other)
  Sender: FDA-Public Use
  Company Number: US-MLMSERVICE-20240412-PI024407-00174-1

PATIENT
  Age: 72 Year
  Sex: Female

DRUGS (1)
  1. HALOPERIDOL [Suspect]
     Active Substance: HALOPERIDOL
     Indication: Product used for unknown indication
     Dosage: 10 MILLIGRAM, TWO TIMES A DAY (TWICE DAILY)
     Route: 065

REACTIONS (3)
  - Leukocytosis [Recovering/Resolving]
  - Urinary retention [Recovered/Resolved]
  - Inappropriate antidiuretic hormone secretion [Recovered/Resolved]
